FAERS Safety Report 7934058-X (Version None)
Quarter: 2011Q4

REPORT INFORMATION
  Report Type: 
  Country: None (occurrence: None)
  Receive Date: 20111122
  Receipt Date: 20111114
  Transmission Date: 20120403
  Serious: Yes (Other)
  Sender: FDA-Public Use
  Company Number: PHHY2011CH100309

PATIENT
  Age: 29 Year
  Sex: Female

DRUGS (1)
  1. METHYLPHENIDATE [Suspect]
     Dosage: 80 MG, UNK
     Route: 045

REACTIONS (2)
  - INTENTIONAL OVERDOSE [None]
  - ANXIETY [None]
